FAERS Safety Report 4466384-3 (Version None)
Quarter: 2004Q3

REPORT INFORMATION
  Report Type: 
  Country: None (occurrence: None)
  Receive Date: 20040930
  Receipt Date: 20040915
  Transmission Date: 20050211
  Serious: Yes (Other)
  Sender: FDA-Public Use
  Company Number: 2004-08-0650

PATIENT
  Age: 58 Year
  Sex: Male
  Weight: 109 kg

DRUGS (13)
  1. TEMODAR [Suspect]
     Indication: GLIOBLASTOMA MULTIFORME
     Dosage: SEE IMAGE
     Route: 048
     Dates: start: 20040308, end: 20040621
  2. TEMODAR [Suspect]
     Indication: GLIOBLASTOMA MULTIFORME
     Dosage: SEE IMAGE
     Route: 048
     Dates: start: 20040308, end: 20040801
  3. TEMODAR [Suspect]
     Indication: GLIOBLASTOMA MULTIFORME
     Dosage: SEE IMAGE
     Route: 048
     Dates: start: 20040801, end: 20040801
  4. RADIATION THERAPY [Suspect]
     Indication: GLIOBLASTOMA MULTIFORME
     Dosage: UNKNOWN X-RAY THERAPY
     Dates: end: 20040421
  5. PROZAC [Concomitant]
  6. DILANTIN [Concomitant]
  7. BACTRIM DS TIW [Concomitant]
  8. ALEVE [Concomitant]
  9. ATIVAN [Concomitant]
  10. RESTORIL [Concomitant]
  11. STOOL SOFTNER (NOS) PRN [Concomitant]
  12. ZANTAC [Concomitant]
  13. CLOTRIMAZOLE [Concomitant]

REACTIONS (12)
  - ALANINE AMINOTRANSFERASE INCREASED [None]
  - ASPARTATE AMINOTRANSFERASE INCREASED [None]
  - BRONCHITIS [None]
  - INFECTION IN AN IMMUNOCOMPROMISED HOST [None]
  - LUNG NEOPLASM [None]
  - LYMPHOPENIA [None]
  - NAUSEA [None]
  - OEDEMA PERIPHERAL [None]
  - PHARYNGOLARYNGEAL PAIN [None]
  - SKIN TIGHTNESS [None]
  - THROMBOCYTOPENIA [None]
  - VOMITING [None]
